FAERS Safety Report 6286415-8 (Version None)
Quarter: 2009Q3

REPORT INFORMATION
  Report Type: 
  Country: None (occurrence: None)
  Receive Date: 20090727
  Receipt Date: 20090727
  Transmission Date: 20100115
  Serious: Yes (Death, Life-Threatening, Hospitalization)
  Sender: FDA-Public Use
  Company Number: None

PATIENT
  Age: 27 Year
  Sex: Female
  Weight: 45.3597 kg

DRUGS (2)
  1. TYLENOL P.M. XTRA STRENGTH [Suspect]
     Indication: INSOMNIA
     Dosage: 1000 MG ACETAMINOPHEN BY MOUTH 5 X DAY 2 WKS
     Route: 048
     Dates: start: 20010701, end: 20010805
  2. TYLENOL P.M. XTRA STRENGTH [Suspect]
     Indication: PAIN
     Dosage: 1000 MG ACETAMINOPHEN BY MOUTH 5 X DAY 2 WKS
     Route: 048
     Dates: start: 20010701, end: 20010805

REACTIONS (1)
  - VITAL FUNCTIONS ABNORMAL [None]
